FAERS Safety Report 16091602 (Version 1)
Quarter: 2019Q1

REPORT INFORMATION
  Report Type: Report from Study
  Country: US (occurrence: US)
  Receive Date: 20190319
  Receipt Date: 20190319
  Transmission Date: 20190418
  Serious: No
  Sender: FDA-Public Use
  Company Number: US-REGENERON PHARMACEUTICALS, INC.-2018-24954

PATIENT

DRUGS (2)
  1. RILONACEPT [Suspect]
     Active Substance: RILONACEPT
     Indication: IMMUNODEFICIENCY COMMON VARIABLE
     Dosage: 160 MG, INTO 2 SITES ON DAY 1 FOLLOWED BY 160 MG WEEKLY FOR 6 MONTHS
     Route: 058
     Dates: start: 20170727
  2. RILONACEPT [Suspect]
     Active Substance: RILONACEPT
     Dosage: 160 MG, INTO 2 SITES ON DAY 1, WEEKLY FOR 6 MONTHS
     Route: 058
     Dates: start: 20170727, end: 20170727

REACTIONS (5)
  - Headache [Unknown]
  - Infusion related reaction [Unknown]
  - Swelling [Unknown]
  - Off label use [Unknown]
  - Syncope [Recovered/Resolved]
